FAERS Safety Report 13360185 (Version 1)
Quarter: 2017Q1

REPORT INFORMATION
  Report Type: Spontaneous
  Country: US (occurrence: US)
  Receive Date: 20170322
  Receipt Date: 20170322
  Transmission Date: 20170429
  Serious: No
  Sender: FDA-Public Use
  Company Number: US-AMNEAL PHARMACEUTICALS-2017AMN00212

PATIENT
  Sex: Female
  Weight: 56.69 kg

DRUGS (5)
  1. ATORVASTATIN [Concomitant]
     Active Substance: ATORVASTATIN
  2. VITAMINS [Concomitant]
     Active Substance: VITAMINS
  3. ESTRADIOL. [Suspect]
     Active Substance: ESTRADIOL
  4. OMEPRAZOLE. [Concomitant]
     Active Substance: OMEPRAZOLE
  5. CALCIUM WITH D [Concomitant]
     Active Substance: CALCIUM\VITAMIN D

REACTIONS (2)
  - Rash maculo-papular [Recovered/Resolved]
  - Pruritus [Recovering/Resolving]
